FAERS Safety Report 6562301-0 (Version None)
Quarter: 2010Q1

REPORT INFORMATION
  Report Type: 
  Country: None (occurrence: None)
  Receive Date: 20100130
  Receipt Date: 20091130
  Transmission Date: 20100710
  Serious: No
  Sender: FDA-Public Use
  Company Number: US-ABBOTT-09P-163-0607475-00

PATIENT
  Sex: Female

DRUGS (8)
  1. HUMIRA [Suspect]
     Indication: RHEUMATOID ARTHRITIS
     Dates: end: 20090901
  2. HUMIRA [Suspect]
     Indication: ANKYLOSING SPONDYLITIS
     Dates: start: 20090901
  3. PROZAC [Concomitant]
     Indication: DRUG USE FOR UNKNOWN INDICATION
  4. NEXIUM [Concomitant]
     Indication: DRUG USE FOR UNKNOWN INDICATION
  5. OXYCODONE [Concomitant]
     Indication: DRUG USE FOR UNKNOWN INDICATION
  6. DIOVAN [Concomitant]
     Indication: DRUG USE FOR UNKNOWN INDICATION
  7. VYTORIN [Concomitant]
     Indication: DRUG USE FOR UNKNOWN INDICATION
  8. ENABLEX [Concomitant]
     Indication: DRUG USE FOR UNKNOWN INDICATION

REACTIONS (5)
  - CONTUSION [None]
  - DRUG INEFFECTIVE [None]
  - ERYTHEMA [None]
  - RASH PRURITIC [None]
  - WRONG TECHNIQUE IN DRUG USAGE PROCESS [None]
